FAERS Safety Report 16216410 (Version 1)
Quarter: 2019Q2

REPORT INFORMATION
  Report Type: Spontaneous
  Country: US (occurrence: US)
  Receive Date: 20190419
  Receipt Date: 20190419
  Transmission Date: 20190711
  Serious: Yes (Hospitalization, Other)
  Sender: FDA-Public Use
  Company Number: US-ACCORD-122151

PATIENT
  Age: 73 Year
  Sex: Male

DRUGS (2)
  1. NALTREXONE/NALTREXONE HYDROCHLORIDE [Suspect]
     Active Substance: NALTREXONE
     Indication: PRODUCT USED FOR UNKNOWN INDICATION
     Dosage: FIRST DOSE OF NALTREXONE
  2. LOPERAMIDE [Suspect]
     Active Substance: LOPERAMIDE
     Indication: EUPHORIC MOOD
     Dosage: 80 PILLS (160 MG) OF LOPERAMIDE A DAY

REACTIONS (8)
  - Diarrhoea [Unknown]
  - Vomiting [Unknown]
  - Chills [Recovered/Resolved]
  - Drug abuse [Unknown]
  - Arrhythmia [Unknown]
  - Abdominal pain [Unknown]
  - Seizure like phenomena [Unknown]
  - Drug withdrawal syndrome [Unknown]
